FAERS Safety Report 20987886 (Version 2)
Quarter: 2022Q3

REPORT INFORMATION
  Report Type: Spontaneous
  Country: US (occurrence: None)
  Receive Date: 20220621
  Receipt Date: 20220714
  Transmission Date: 20221026
  Serious: No
  Sender: FDA-Public Use
  Company Number: 2022A223179

PATIENT
  Sex: Male
  Weight: 71.7 kg

DRUGS (4)
  1. FARXIGA [Suspect]
     Active Substance: DAPAGLIFLOZIN PROPANEDIOL
     Indication: Cardiac failure
     Route: 048
     Dates: start: 20220514
  2. VALSARTAN [Concomitant]
     Active Substance: VALSARTAN
  3. VALSARTAN [Concomitant]
     Active Substance: VALSARTAN
     Dates: start: 20220523
  4. VALSARTAN [Concomitant]
     Active Substance: VALSARTAN
     Dates: start: 20220528

REACTIONS (7)
  - Paraesthesia [Recovered/Resolved]
  - Glucose urine [Recovered/Resolved]
  - Malaise [Recovered/Resolved]
  - Dizziness [Recovered/Resolved]
  - Fatigue [Recovered/Resolved]
  - Blood pressure fluctuation [Unknown]
  - Blood glucose increased [Unknown]
